FAERS Safety Report 14950843 (Version 1)
Quarter: 2018Q2

REPORT INFORMATION
  Report Type: Other
  Country: GB (occurrence: GB)
  Receive Date: 20180530
  Receipt Date: 20180530
  Transmission Date: 20180711
  Serious: Yes (Life-Threatening, Other)
  Sender: FDA-Public Use
  Company Number: GB-STRIDES ARCOLAB LIMITED-2018SP004228

PATIENT

DRUGS (1)
  1. VANCOMYCIN [Suspect]
     Active Substance: VANCOMYCIN
     Indication: BETA HAEMOLYTIC STREPTOCOCCAL INFECTION
     Dosage: 1 G, UNKNOWN
     Route: 042
     Dates: start: 20180513, end: 20180513

REACTIONS (5)
  - Exposure during pregnancy [Unknown]
  - Pruritus [Unknown]
  - Dyspnoea [Recovered/Resolved]
  - Erythema [Unknown]
  - Incorrect drug administration rate [Unknown]

NARRATIVE: CASE EVENT DATE: 20180513
